FAERS Safety Report 15344356 (Version 1)
Quarter: 2018Q3

REPORT INFORMATION
  Report Type: Spontaneous
  Country: US (occurrence: US)
  Receive Date: 20180903
  Receipt Date: 20180903
  Transmission Date: 20181010
  Serious: Yes (Other)
  Sender: FDA-Public Use
  Company Number: US-SA-2017SA265514

PATIENT
  Age: 54 Year
  Sex: Female
  Weight: 79.38 kg

DRUGS (14)
  1. TAXOTERE [Suspect]
     Active Substance: DOCETAXEL
     Dosage: 149 MG, Q3W
     Route: 042
     Dates: start: 20020812, end: 20020812
  2. ZOLOFT [Concomitant]
     Active Substance: SERTRALINE HYDROCHLORIDE
     Dosage: UNK
     Route: 065
     Dates: start: 20000103, end: 20001204
  3. ATIVAN [Concomitant]
     Active Substance: LORAZEPAM
     Dosage: UNK
     Route: 065
     Dates: start: 19950506, end: 20001102
  4. RITALIN [Concomitant]
     Active Substance: METHYLPHENIDATE HYDROCHLORIDE
     Dosage: UNK
     Route: 065
     Dates: start: 19980508, end: 19990506
  5. WELLBUTRIN [Concomitant]
     Active Substance: BUPROPION HYDROCHLORIDE
     Dosage: UNK UNK, UNK
     Route: 016
     Dates: start: 19950506, end: 19991209
  6. TAXOL [Concomitant]
     Active Substance: PACLITAXEL
     Route: 065
  7. TAXOTERE [Suspect]
     Active Substance: DOCETAXEL
     Dosage: 149 UNK
     Route: 042
     Dates: start: 20070213, end: 20070213
  8. AMBIEN [Concomitant]
     Active Substance: ZOLPIDEM TARTRATE
     Dosage: UNK
     Route: 065
     Dates: start: 19950506, end: 20001102
  9. NEOSAR [Concomitant]
     Active Substance: CYCLOPHOSPHAMIDE
     Route: 065
  10. TAXOTERE [Suspect]
     Active Substance: DOCETAXEL
     Dosage: 149 MG, Q3W
     Route: 042
     Dates: start: 20061212, end: 20061212
  11. DOXORUBICIN [Concomitant]
     Active Substance: DOXORUBICIN
     Route: 065
  12. CYTOXAN [Concomitant]
     Active Substance: CYCLOPHOSPHAMIDE
     Dosage: UNK
     Route: 065
     Dates: start: 2006, end: 2007
  13. TAXOTERE [Suspect]
     Active Substance: DOCETAXEL
     Indication: BREAST CANCER FEMALE
     Dosage: UNK
     Route: 042
     Dates: start: 20020101, end: 20020101
  14. TAXOTERE [Suspect]
     Active Substance: DOCETAXEL
     Dosage: UNK
     Route: 042
     Dates: start: 20061212, end: 20061212

REACTIONS (2)
  - Alopecia [Recovering/Resolving]
  - Psychological trauma [Unknown]

NARRATIVE: CASE EVENT DATE: 20170915
